FAERS Safety Report 14824574 (Version 1)
Quarter: 2018Q2

REPORT INFORMATION
  Report Type: Spontaneous
  Country: FR (occurrence: FR)
  Receive Date: 20180429
  Receipt Date: 20180429
  Transmission Date: 20180711
  Serious: Yes (Other)
  Sender: FDA-Public Use
  Company Number: FR-MERCK KGAA-2046774

PATIENT
  Age: 46 Year
  Sex: Female

DRUGS (1)
  1. NOVOTHYROX [Suspect]
     Active Substance: LEVOTHYROXINE SODIUM
     Indication: POST PROCEDURAL HYPOTHYROIDISM

REACTIONS (17)
  - Chest pain [None]
  - Tension [None]
  - Blood thyroid stimulating hormone decreased [None]
  - Tri-iodothyronine free decreased [None]
  - Feeling abnormal [None]
  - Asthenia [None]
  - Insomnia [None]
  - Angina pectoris [None]
  - Tachycardia [None]
  - Diarrhoea [None]
  - Emotional distress [None]
  - Depression [None]
  - Loss of personal independence in daily activities [None]
  - Blood cholesterol increased [None]
  - Blood glucose increased [None]
  - Eye disorder [None]
  - Blood triglycerides increased [None]

NARRATIVE: CASE EVENT DATE: 201704
